FAERS Safety Report 4846782-6 (Version None)
Quarter: 2005Q4

REPORT INFORMATION
  Report Type: 
  Country: None (occurrence: None)
  Receive Date: 20051201
  Receipt Date: 20051119
  Transmission Date: 20060501
  Serious: Yes (Hospitalization, Other)
  Sender: FDA-Public Use
  Company Number: 2005150253

PATIENT
  Age: 55 Year
  Sex: Male
  Weight: 104.3273 kg

DRUGS (5)
  1. NORVASC [Suspect]
     Indication: HYPERTENSION
     Dosage: ORAL
     Route: 048
     Dates: start: 19940101
  2. VIAGRA [Suspect]
     Indication: ERECTILE DYSFUNCTION
     Dosage: 25 MG (ORAL)
     Route: 048
     Dates: start: 20030101
  3. COZAAR [Concomitant]
  4. ANTIGOUT PREPARATIONS (ANTIGOUT  PREPARATIONS) [Concomitant]
  5. DIOVAN [Concomitant]

REACTIONS (5)
  - CARDIAC FAILURE CONGESTIVE [None]
  - DRUG EFFECT DECREASED [None]
  - ERECTILE DYSFUNCTION [None]
  - MALAISE [None]
  - NAUSEA [None]
